FAERS Safety Report 11460645 (Version 4)
Quarter: 2015Q4

REPORT INFORMATION
  Report Type: Spontaneous
  Country: US (occurrence: US)
  Receive Date: 20150904
  Receipt Date: 20151109
  Transmission Date: 20160304
  Serious: No
  Sender: FDA-Public Use
  Company Number: US-TAKEDA-2015TUS011892

PATIENT
  Age: 62 Year
  Sex: Female
  Weight: 81.18 kg

DRUGS (1)
  1. CONTRAVE [Suspect]
     Active Substance: BUPROPION HYDROCHLORIDE\NALTREXONE HYDROCHLORIDE
     Indication: OBESITY
     Dosage: 8MG/90MG, QD
     Route: 048
     Dates: start: 20150828, end: 20150829

REACTIONS (9)
  - Defaecation urgency [Recovered/Resolved]
  - Hot flush [Recovered/Resolved]
  - Flatulence [Not Recovered/Not Resolved]
  - Headache [Recovered/Resolved]
  - Oropharyngeal pain [Not Recovered/Not Resolved]
  - Eructation [Not Recovered/Not Resolved]
  - Fatigue [Recovered/Resolved]
  - Nausea [Recovered/Resolved]
  - Abdominal pain [Recovered/Resolved]

NARRATIVE: CASE EVENT DATE: 20150828
